FAERS Safety Report 11759619 (Version 1)
Quarter: 2015Q4

REPORT INFORMATION
  Report Type: Spontaneous
  Country: US (occurrence: US)
  Receive Date: 20151120
  Receipt Date: 20151120
  Transmission Date: 20160304
  Serious: No
  Sender: FDA-Public Use
  Company Number: US-ELI_LILLY_AND_COMPANY-US201210005511

PATIENT
  Age: 47 Year
  Sex: Female

DRUGS (2)
  1. FORTEO [Suspect]
     Active Substance: TERIPARATIDE
     Dosage: UNK, UNKNOWN
     Dates: end: 20120918
  2. COUMADIN [Concomitant]
     Active Substance: WARFARIN SODIUM
     Indication: ANTIPHOSPHOLIPID SYNDROME
     Dosage: UNK, UNKNOWN

REACTIONS (9)
  - Antiphospholipid syndrome [Unknown]
  - Muscle spasms [Unknown]
  - Hallucination [Unknown]
  - Diarrhoea [Unknown]
  - Headache [Unknown]
  - Pain in extremity [Unknown]
  - Feeling abnormal [Unknown]
  - Pigmentation disorder [Unknown]
  - Restless legs syndrome [Unknown]
